FAERS Safety Report 5488673-6 (Version None)
Quarter: 2007Q4

REPORT INFORMATION
  Report Type: 
  Country: None (occurrence: None)
  Receive Date: 20071016
  Receipt Date: 20071012
  Transmission Date: 20080405
  Serious: Yes (Death, Hospitalization)
  Sender: FDA-Public Use
  Company Number: 129-C5013-07100486

PATIENT
  Age: 70 Year
  Sex: Male
  Weight: 82 kg

DRUGS (3)
  1. CC-5013\PLACEBO (LENALIDOMIDE) (CAPSULES) [Suspect]
     Indication: MULTIPLE MYELOMA
     Dosage: 10 MG, DAILY, ORAL
     Route: 048
     Dates: start: 20070918, end: 20071008
  2. MELPHALAN (MELPHALAN) [Suspect]
     Indication: MULTIPLE MYELOMA
     Dosage: 16 MG, DAILY, ORAL
     Route: 048
     Dates: start: 20070918, end: 20070921
  3. PREDNISONE TAB [Suspect]
     Indication: MULTIPLE MYELOMA
     Dosage: 184 MG, DAILY, ORAL
     Route: 048
     Dates: start: 20070918, end: 20070921

REACTIONS (3)
  - LOSS OF CONSCIOUSNESS [None]
  - NEUTROPENIA [None]
  - RESPIRATORY FAILURE [None]
